FAERS Safety Report 14159442 (Version 1)
Quarter: 2017Q4

REPORT INFORMATION
  Report Type: Other
  Country: GB (occurrence: GB)
  Receive Date: 20171103
  Receipt Date: 20171103
  Transmission Date: 20180321
  Serious: Yes (Other)
  Sender: FDA-Public Use
  Company Number: GB-INTERNATIONAL MEDICATION SYSTEMS, LIMITED-2033218

PATIENT
  Age: 31 Year
  Sex: Female

DRUGS (4)
  1. MORPHINE, PATIENT CONTROLLED ANALGESIA [Suspect]
     Active Substance: MORPHINE SULFATE
     Route: 042
  2. MORPHINE, PATIENT CONTROLLED ANALGESIA [Suspect]
     Active Substance: MORPHINE SULFATE
     Indication: PAIN
     Route: 042
  3. FENTANYL. [Suspect]
     Active Substance: FENTANYL
  4. KETAMINE [Concomitant]
     Active Substance: KETAMINE

REACTIONS (1)
  - Secondary adrenocortical insufficiency [Unknown]
